FAERS Safety Report 5904214-0 (Version None)
Quarter: 2008Q3

REPORT INFORMATION
  Report Type: 
  Country: None (occurrence: None)
  Receive Date: 20080930
  Receipt Date: 20080930
  Transmission Date: 20090109
  Serious: No
  Sender: FDA-Public Use
  Company Number: None

PATIENT
  Age: 79 Year
  Sex: Female

DRUGS (1)
  1. ADVAIR DISKUS 100/50 [Suspect]

REACTIONS (5)
  - BLINDNESS UNILATERAL [None]
  - LACRIMATION INCREASED [None]
  - NASAL OEDEMA [None]
  - RHINORRHOEA [None]
  - SKIN DISCOLOURATION [None]
